FAERS Safety Report 26107865 (Version 3)
Quarter: 2025Q4

REPORT INFORMATION
  Report Type: Report from Study
  Country: KR (occurrence: KR)
  Receive Date: 20251201
  Receipt Date: 20251217
  Transmission Date: 20260118
  Serious: Yes (Hospitalization)
  Sender: TAKEDA
  Company Number: KR-TAKEDA-2025TUS107352

PATIENT
  Age: 32 Year
  Sex: Female
  Weight: 45.8 kg

DRUGS (21)
  1. FRUQUINTINIB [Suspect]
     Active Substance: FRUQUINTINIB
     Indication: Colorectal cancer metastatic
     Dosage: 5 MILLIGRAM, QD
     Dates: start: 20251024, end: 20251113
  2. NAXEN-F [Concomitant]
     Indication: Pyrexia
     Dosage: UNK UNK, BID
     Dates: start: 20251023
  3. NORVASC [Concomitant]
     Active Substance: AMLODIPINE BESYLATE
     Indication: Hypertension
     Dosage: UNK, QD
     Dates: start: 20251030
  4. ABSTRAL [Concomitant]
     Active Substance: FENTANYL CITRATE
     Indication: Colorectal cancer metastatic
     Dosage: UNK
  5. CETIZAL [Concomitant]
     Indication: Laryngitis
     Dosage: UNK UNK, QD
     Dates: start: 20251023, end: 20251111
  6. COUGH SYRUP [Concomitant]
     Active Substance: DEXTROMETHORPHAN HYDROBROMIDE\GUAIFENESIN
     Indication: Laryngitis
     Dosage: UNK UNK, TID
     Dates: start: 20251023, end: 20251111
  7. Dulackhan easy [Concomitant]
     Indication: Constipation
     Dosage: UNK UNK, TID
     Dates: start: 20250414
  8. METOCLOPRAMIDE HYDROCHLORIDE [Concomitant]
     Active Substance: METOCLOPRAMIDE HYDROCHLORIDE
     Indication: Nausea
     Dosage: UNK UNK, TID
     Dates: start: 20251106
  9. RINOEBASTEL [Concomitant]
     Indication: Laryngitis
     Dosage: UNK UNK, QD
     Dates: start: 20251106, end: 20251111
  10. ULTRACET ER SEMI [Concomitant]
     Indication: Pain
     Dosage: UNK UNK, BID
     Dates: start: 20250422
  11. GASTIIN CR [Concomitant]
     Indication: Dyspepsia
     Dosage: UNK UNK, QD
     Dates: start: 20251020
  12. HERBALS [Concomitant]
     Active Substance: HERBALS
     Indication: Dyspepsia
     Dosage: UNK UNK, TID
     Dates: start: 20251028
  13. NORZYME [Concomitant]
     Indication: Dyspepsia
     Dosage: UNK UNK, TID
     Dates: start: 20250323
  14. RABIET [Concomitant]
     Indication: Dyspepsia
     Dosage: UNK UNK, QD
     Dates: start: 20250805
  15. URUSA [Concomitant]
     Active Substance: URSODIOL
     Indication: Colorectal cancer metastatic
     Dosage: UNK UNK, TID
     Dates: start: 20251028
  16. CEFOTAXIME SODIUM [Concomitant]
     Active Substance: CEFOTAXIME SODIUM
     Indication: Pyrexia
     Dosage: UNK UNK, TID
     Dates: start: 20251025, end: 20251031
  17. TRISONKIT [Concomitant]
     Indication: Pyrexia
     Dosage: UNK UNK, QD
     Dates: start: 20251024, end: 20251024
  18. PACETA [Concomitant]
     Indication: Pyrexia
     Dosage: UNK
     Dates: start: 20251024, end: 20251030
  19. ALBUMIN HUMAN [Concomitant]
     Active Substance: ALBUMIN HUMAN
     Indication: Laboratory test abnormal
     Dosage: UNK UNK, QD
     Dates: start: 20251026, end: 20251026
  20. Magnesin [Concomitant]
     Indication: Laboratory test abnormal
     Dosage: UNK UNK, QD
     Dates: start: 20251026, end: 20251027
  21. CALCIUM GLUCONATE [Concomitant]
     Active Substance: CALCIUM GLUCONATE
     Indication: Laboratory test abnormal
     Dosage: UNK UNK, QD
     Dates: start: 20251026, end: 20251026

REACTIONS (2)
  - Device occlusion [Not Recovered/Not Resolved]
  - No adverse event [Unknown]

NARRATIVE: CASE EVENT DATE: 20251117
